FAERS Safety Report 8780221 (Version 1)
Quarter: 2012Q4

REPORT INFORMATION
  Report Type: Spontaneous
  Country: US (occurrence: None)
  Receive Date: 20120904
  Receipt Date: 20120904
  Transmission Date: 20130627
  Serious: Yes (Hospitalization)
  Sender: FDA-Public Use
  Company Number: None

PATIENT
  Sex: Female
  Weight: 102.2 kg

DRUGS (2)
  1. CISPLATIN [Suspect]
     Dates: end: 20120820
  2. DOCETAXEL (TAXOTERE) [Suspect]
     Dates: end: 20120820

REACTIONS (3)
  - Diarrhoea [None]
  - Nausea [None]
  - Dehydration [None]
